FAERS Safety Report 11365320 (Version 3)
Quarter: 2015Q3

REPORT INFORMATION
  Report Type: Report from Study
  Country: DK (occurrence: DK)
  Receive Date: 20150811
  Receipt Date: 20150824
  Transmission Date: 20151125
  Serious: Yes (Hospitalization)
  Sender: FDA-Public Use
  Company Number: DK-GLAXOSMITHKLINE-DK2015GSK114709

PATIENT
  Age: 54 Year
  Sex: Female
  Weight: 84 kg

DRUGS (2)
  1. TRAMETINIB [Suspect]
     Active Substance: TRAMETINIB
     Indication: METASTATIC MALIGNANT MELANOMA
     Dosage: 2 MG, QD
     Dates: start: 20150526
  2. DABRAFENIB [Suspect]
     Active Substance: DABRAFENIB
     Indication: MALIGNANT MELANOMA
     Dosage: 150 MG, BID
     Dates: start: 20140112

REACTIONS (15)
  - Hepatic enzyme increased [Unknown]
  - Fatigue [Unknown]
  - Diarrhoea [Unknown]
  - Photosensitivity reaction [Unknown]
  - Headache [Unknown]
  - Cystitis [Unknown]
  - Performance status decreased [Unknown]
  - Nausea [Unknown]
  - Hypertension [Unknown]
  - Pyrexia [Unknown]
  - Rash maculo-papular [Unknown]
  - Palmar-plantar erythrodysaesthesia syndrome [Unknown]
  - Infection [Unknown]
  - Myalgia [Unknown]
  - Arthralgia [Unknown]

NARRATIVE: CASE EVENT DATE: 20150706
